FAERS Safety Report 10036135 (Version 1)
Quarter: 2014Q1

REPORT INFORMATION
  Report Type: Spontaneous
  Country: US (occurrence: None)
  Receive Date: 20140306
  Receipt Date: 20140306
  Transmission Date: 20141002
  Serious: Yes (Hospitalization)
  Sender: FDA-Public Use
  Company Number: 163-21880-12080790

PATIENT
  Age: 68 Year
  Sex: Female

DRUGS (20)
  1. REVLIMID (LENALIDOMIDE) (CAPSULES) [Suspect]
     Indication: PLASMA CELL MYELOMA
     Route: 048
     Dates: start: 20120329, end: 20120727
  2. ELOTUZUMAB [Suspect]
     Indication: PRODUCT USED FOR UNKNOWN INDICATION
  3. DEXAMETHASONE (DEXAMETHASONE) [Suspect]
     Indication: ADVERSE EVENT
     Dates: start: 20120329, end: 20120726
  4. TRIAMCINOLONE ACITONIDE (TRIAMCINOLONE ACETONIDE) [Concomitant]
  5. OXYCODONE (OXYCODONE) [Concomitant]
  6. ASA (ACETYLSALICYLIC ACID) [Concomitant]
  7. LIDOCAINE (LIDOCAINE) [Concomitant]
  8. TRAMADOL (TRAMADOL) [Concomitant]
  9. RALOXIFENE (RALOXIFENE) [Concomitant]
  10. OMEGA 3 FATTY ACIDS (OMEGA-3 FATTY ACIDS) [Concomitant]
  11. MULTIVITAMINS (MULTIVITAMINS) [Concomitant]
  12. CHOLECALCIFEROL (COLECALCIFEROL) [Concomitant]
  13. CALCIUM CARBONATE-VITAMIN D (OS-CAL) [Concomitant]
  14. CALCIUM CARBONATE (CALCIUM CARBONATE) [Concomitant]
  15. ALPRAZOLAM (ALPRAZOLAM) [Concomitant]
  16. ACYCLOVIR (ACICLOVIR) [Concomitant]
  17. FENTANYL (FENTANYL) [Concomitant]
  18. TYLENOL (PARACETAMOL) [Concomitant]
  19. BENADRYL (DIPHENHYDRAMINE) [Concomitant]
  20. HYDROCODONE W/ACETAMINOPHEN (VICODIN) [Concomitant]

REACTIONS (1)
  - Spinal cord compression [None]
